FAERS Safety Report 5233968-4 (Version None)
Quarter: 2007Q1

REPORT INFORMATION
  Report Type: 
  Country: None (occurrence: None)
  Receive Date: 20070208
  Receipt Date: 20070130
  Transmission Date: 20070707
  Serious: Yes (Hospitalization)
  Sender: FDA-Public Use
  Company Number: HQWYE058222JAN07

PATIENT
  Sex: Male
  Weight: 70.37 kg

DRUGS (32)
  1. RAPAMUNE [Suspect]
     Indication: PROPHYLAXIS AGAINST TRANSPLANT REJECTION
     Dosage: UNKNOWN
     Route: 048
     Dates: start: 20040824, end: 20060306
  2. RAPAMUNE [Suspect]
     Route: 048
     Dates: start: 20060307, end: 20060307
  3. RAPAMUNE [Suspect]
     Route: 048
     Dates: start: 20060308, end: 20060802
  4. RAPAMUNE [Suspect]
     Dosage: 6 MG DAILY ALTERNATING WITH 5 MG DAILY ON ODD DAYS
     Route: 048
     Dates: start: 20060803, end: 20070109
  5. RAPAMUNE [Suspect]
     Dosage: 6 MG DAILY ALTERNATING WITH 5 MG DAILY ON ODD DAYS
     Route: 048
     Dates: start: 20070113, end: 20070117
  6. RAPAMUNE [Suspect]
     Route: 048
     Dates: start: 20070119
  7. PREDNISONE [Concomitant]
     Indication: IMMUNOSUPPRESSANT DRUG THERAPY
     Route: 065
     Dates: start: 20041111
  8. LIPITOR [Concomitant]
     Indication: HYPERLIPIDAEMIA
     Route: 065
     Dates: start: 20050719
  9. TENORMIN [Concomitant]
     Indication: HYPERTENSION
     Route: 065
     Dates: start: 20041215
  10. LISINOPRIL [Concomitant]
     Indication: HYPERTENSION
     Route: 065
     Dates: start: 20050907
  11. CYMBALTA [Concomitant]
     Indication: DEPRESSION
     Dosage: UNKNOWN
     Route: 065
     Dates: start: 20051227
  12. CYMBALTA [Concomitant]
     Indication: ANXIETY
  13. BACTRIM DS [Concomitant]
     Dosage: UNKNOWN
     Route: 065
     Dates: start: 20000307
  14. ESOMEPRAZOLE MAGNESIUM [Concomitant]
     Dosage: UNKNOWN
     Route: 065
     Dates: start: 20041112
  15. CALCIUM CARBONATE [Concomitant]
     Dosage: UNKNOWN
     Dates: start: 20000614
  16. ASPIRIN [Concomitant]
     Dosage: UNKNOWN
     Dates: start: 20041111
  17. PLAVIX [Concomitant]
     Dosage: UNKNOWN
     Dates: start: 20041111
  18. FLOMAX [Concomitant]
     Dosage: UNKNOWN
     Dates: start: 20010831
  19. MULTIVIT [Concomitant]
     Dosage: UNKNOWN
     Dates: start: 20000307
  20. BUSPAR [Concomitant]
     Indication: DEPRESSION
     Dosage: UNKNOWN
     Dates: start: 20020910
  21. BUSPAR [Concomitant]
     Indication: ANXIETY
  22. PERCOCET [Concomitant]
     Dosage: UNKNOWN
     Dates: start: 20041111
  23. CLARINEX [Concomitant]
     Dosage: UNKNOWN
     Dates: start: 20041004
  24. AMBIEN [Concomitant]
     Dosage: UNKNOWN
     Dates: start: 20030303
  25. NOVOLOG [Concomitant]
     Dosage: UNKNOWN
     Dates: start: 20051227
  26. LANTUS [Concomitant]
     Dosage: UNKNOWN
     Dates: start: 20051227
  27. ROSIGLITAZONE [Concomitant]
     Dosage: UNKNOWN
     Dates: start: 20060206
  28. GLIMEPIRIDE [Concomitant]
     Dosage: UNKNOWN
     Dates: start: 20060206
  29. KLONOPIN [Concomitant]
     Indication: DEPRESSION
     Dosage: UNKNOWN
     Dates: start: 20040907
  30. KLONOPIN [Concomitant]
     Indication: ANXIETY
  31. CELLCEPT [Concomitant]
     Indication: IMMUNOSUPPRESSANT DRUG THERAPY
     Route: 065
     Dates: start: 20041121, end: 20070101
  32. CELLCEPT [Concomitant]
     Route: 065
     Dates: start: 20070101

REACTIONS (2)
  - ASTHENIA [None]
  - DEHYDRATION [None]
